FAERS Safety Report 11353813 (Version 1)
Quarter: 2015Q3

REPORT INFORMATION
  Report Type: Spontaneous
  Country: US (occurrence: US)
  Receive Date: 20150807
  Receipt Date: 20150807
  Transmission Date: 20151125
  Serious: No
  Sender: FDA-Public Use
  Company Number: US-JNJFOC-20150307188

PATIENT
  Age: 63 Year
  Sex: Female
  Weight: 54.43 kg

DRUGS (19)
  1. SIMETHICONE (DIMETHICONE) [Concomitant]
     Active Substance: DIMETHICONE
     Indication: FLATULENCE
     Dosage: 6 YEARS
     Route: 065
  2. POTASSIUM CHLORIDE. [Concomitant]
     Active Substance: POTASSIUM CHLORIDE
     Indication: HYPOKALAEMIA
     Dosage: DOSAGE - 20MEQ/15ML (SF) LIQUID, 1 TBSP DAILY????10 YEARS
     Route: 065
  3. ENOXAPARIN [Concomitant]
     Active Substance: ENOXAPARIN
     Indication: THROMBOSIS
     Dosage: DOSAGE - 1 SHOT????INTERVAL - 3 YEARS FROM 2007
     Route: 065
  4. ZOLPIDEM TARTRATE. [Concomitant]
     Active Substance: ZOLPIDEM TARTRATE
     Indication: SLEEP DISORDER THERAPY
     Dosage: DOSAGE - 1/2 OF A 10MG PILL, 1X NIGHTLY????1 YEAR
     Route: 065
  5. CHLORTHALIDONE. [Concomitant]
     Active Substance: CHLORTHALIDONE
     Indication: BLOOD PRESSURE MEASUREMENT
     Dosage: 3 YEARS
     Route: 065
  6. TRAMADOL HCL [Concomitant]
     Active Substance: TRAMADOL HYDROCHLORIDE
     Indication: PAIN MANAGEMENT
     Dosage: 1.5 YEARS
     Route: 065
  7. ONDANSETRON HCL [Concomitant]
     Active Substance: ONDANSETRON HYDROCHLORIDE
     Indication: NAUSEA
     Dosage: 1 YEAR
     Route: 065
  8. KETOTIFEN FUMARATE. [Concomitant]
     Active Substance: KETOTIFEN FUMARATE
     Indication: VISION BLURRED
     Dosage: DOSAGE - 1 DROP EACH EYE????2 YEARS
     Route: 065
  9. KETOTIFEN FUMARATE. [Concomitant]
     Active Substance: KETOTIFEN FUMARATE
     Indication: DRY EYE
     Dosage: DOSAGE - 1 DROP EACH EYE????2 YEARS
     Route: 065
  10. SIMVASTATIN. [Concomitant]
     Active Substance: SIMVASTATIN
     Indication: BLOOD CHOLESTEROL
     Dosage: DOSAGE - 1 TABLET NIGHTLY????4 YEARS
     Route: 065
  11. MENS ROGAINE EXTRA STRENGTH [Suspect]
     Active Substance: MINOXIDIL
     Indication: ALOPECIA
     Dosage: DOSAGE - MORE THAN HALF A CAP FULL
     Route: 061
     Dates: start: 20150303, end: 20150305
  12. FLUOCINOLONE ACETONIDE. [Concomitant]
     Active Substance: FLUOCINOLONE ACETONIDE
     Indication: PAIN OF SKIN
     Dosage: DOSAGE - .01% SOLUTION????INTERVAL - FEW MONTHS
     Route: 065
  13. OMEGA 3 [Concomitant]
     Active Substance: OMEGA-3 FATTY ACIDS
     Indication: ROUTINE HEALTH MAINTENANCE
     Dosage: 2 YEARS
     Route: 065
  14. PROPYLTHIOURACIL. [Concomitant]
     Active Substance: PROPYLTHIOURACIL
     Indication: THYROID NEOPLASM
     Dosage: 6 YEARS
     Route: 065
  15. ALCON LAGRIMAS [Concomitant]
     Indication: DRY EYE
     Dosage: DOSAGE - 1 DROP EACH EYE????4 YEARS
     Route: 065
  16. MENS ROGAINE EXTRA STRENGTH [Suspect]
     Active Substance: MINOXIDIL
     Route: 061
  17. VICODIN [Concomitant]
     Active Substance: ACETAMINOPHEN\HYDROCODONE BITARTRATE
     Indication: PAIN MANAGEMENT
     Dosage: INTERVAL - 3 YEARS
     Route: 065
  18. ATENOLOL. [Concomitant]
     Active Substance: ATENOLOL
     Indication: BLOOD PRESSURE MEASUREMENT
     Dosage: FEW MONTHS
     Route: 065
  19. OMEPRAZOLE. [Concomitant]
     Active Substance: OMEPRAZOLE
     Indication: GASTROINTESTINAL PAIN
     Dosage: 7 YEARS
     Route: 065

REACTIONS (7)
  - Incorrect dose administered [Unknown]
  - Erythema [Recovering/Resolving]
  - Pain of skin [Recovering/Resolving]
  - Wrong patient received medication [Unknown]
  - Product use issue [Unknown]
  - Inappropriate schedule of drug administration [Unknown]
  - Skin irritation [Recovering/Resolving]

NARRATIVE: CASE EVENT DATE: 20150303
